FAERS Safety Report 15974106 (Version 2)
Quarter: 2019Q1

REPORT INFORMATION
  Report Type: Report from Study
  Country: None (occurrence: US)
  Receive Date: 20190217
  Receipt Date: 20190224
  Transmission Date: 20190418
  Serious: Yes (Other)
  Sender: FDA-Public Use
  Company Number: US-ABBVIE-19K-163-2614085-00

PATIENT
  Sex: Male
  Weight: 99.88 kg

DRUGS (10)
  1. AQUA TEARS [Concomitant]
     Indication: DRY EYE
  2. XALATAN [Concomitant]
     Active Substance: LATANOPROST
     Indication: GLAUCOMA
  3. HUMIRA [Suspect]
     Active Substance: ADALIMUMAB
     Route: 058
     Dates: start: 2016
  4. DELZICOL [Concomitant]
     Active Substance: MESALAMINE
     Indication: COLITIS ULCERATIVE
  5. MERCAPTOPURINE. [Concomitant]
     Active Substance: MERCAPTOPURINE
     Indication: COLON CANCER
  6. PREDNISONE. [Suspect]
     Active Substance: PREDNISONE
     Indication: COLITIS ULCERATIVE
     Route: 065
     Dates: start: 2012, end: 2017
  7. HUMIRA [Suspect]
     Active Substance: ADALIMUMAB
     Dosage: 3 INJECTIONS
     Route: 058
     Dates: start: 2016, end: 2016
  8. ATENOLOL. [Concomitant]
     Active Substance: ATENOLOL
     Indication: HYPERTENSION
  9. ENALAPRIL [Concomitant]
     Active Substance: ENALAPRIL
     Indication: HYPERTENSION
  10. HUMIRA [Suspect]
     Active Substance: ADALIMUMAB
     Indication: COLITIS ULCERATIVE
     Route: 058
     Dates: start: 201604, end: 2016

REACTIONS (18)
  - Peptic ulcer [Not Recovered/Not Resolved]
  - Hepatitis C [Not Recovered/Not Resolved]
  - Medication error [Not Recovered/Not Resolved]
  - Colon cancer [Recovered/Resolved]
  - Headache [Not Recovered/Not Resolved]
  - Intestinal cyst [Recovered/Resolved]
  - Injection site papule [Recovered/Resolved]
  - Osteoporosis [Not Recovered/Not Resolved]
  - Haematochezia [Not Recovered/Not Resolved]
  - Visual impairment [Not Recovered/Not Resolved]
  - Vomiting [Not Recovered/Not Resolved]
  - Nausea [Not Recovered/Not Resolved]
  - Injection site rash [Recovered/Resolved]
  - Visual impairment [Recovered/Resolved]
  - Dizziness [Not Recovered/Not Resolved]
  - Large intestine polyp [Recovered/Resolved]
  - Gastrooesophageal reflux disease [Not Recovered/Not Resolved]
  - Injection site bruising [Recovered/Resolved]

NARRATIVE: CASE EVENT DATE: 2016
